FAERS Safety Report 11292934 (Version 2)
Quarter: 2015Q4

REPORT INFORMATION
  Report Type: Spontaneous
  Country: US (occurrence: US)
  Receive Date: 20150722
  Receipt Date: 20151102
  Transmission Date: 20160304
  Serious: Yes (Death)
  Sender: FDA-Public Use
  Company Number: US-DSJP-DSU-2015-122768

PATIENT

DRUGS (31)
  1. CARVEDILOL. [Concomitant]
     Active Substance: CARVEDILOL
     Dosage: 80 MG, UNK
     Dates: start: 2007
  2. TYLENOL [Concomitant]
     Active Substance: ACETAMINOPHEN
  3. NISOLDIPINE. [Concomitant]
     Active Substance: NISOLDIPINE
     Dosage: 20 MG, UNK
     Dates: start: 2008, end: 2010
  4. HCTZ [Concomitant]
     Active Substance: HYDROCHLOROTHIAZIDE
     Dosage: 25 MG, UNK
     Dates: start: 2009
  5. ROCEPHIN [Concomitant]
     Active Substance: CEFTRIAXONE SODIUM
     Dosage: 1 G, UNK
     Route: 030
     Dates: start: 2007, end: 2010
  6. AMLODIPINE BESYLATE. [Concomitant]
     Active Substance: AMLODIPINE BESYLATE
     Dosage: UNK
     Dates: start: 2007
  7. DECADRON [Concomitant]
     Active Substance: DEXAMETHASONE
     Dosage: 1 ML, UNK
     Route: 030
     Dates: start: 2007, end: 2010
  8. CIPRO                              /00697201/ [Concomitant]
     Active Substance: CIPROFLOXACIN
  9. CARVEDILOL. [Concomitant]
     Active Substance: CARVEDILOL
     Dosage: 40 MG, UNK
     Dates: start: 2007
  10. XYZAL [Concomitant]
     Active Substance: LEVOCETIRIZINE DIHYDROCHLORIDE
     Dosage: UNK
     Dates: start: 2007
  11. AZOR [Suspect]
     Active Substance: AMLODIPINE BESYLATE\OLMESARTAN MEDOXOMIL
     Indication: HYPERTENSION
     Dosage: 10/20MG
     Route: 048
     Dates: start: 2008, end: 20100629
  12. BIDIL [Concomitant]
     Active Substance: HYDRALAZINE HYDROCHLORIDE\ISOSORBIDE DINITRATE
     Dosage: 20/35.5MG
     Dates: start: 2007, end: 2010
  13. BYSTOLIC [Concomitant]
     Active Substance: NEBIVOLOL HYDROCHLORIDE
     Dosage: 5MG/10MG
     Dates: start: 2009
  14. SPIRONOLACTONE. [Concomitant]
     Active Substance: SPIRONOLACTONE
     Dosage: 25 MG, UNK
     Dates: start: 2007
  15. RANITIDINE [Concomitant]
     Active Substance: RANITIDINE\RANITIDINE HYDROCHLORIDE
  16. AVANDAMET [Concomitant]
     Active Substance: METFORMIN HYDROCHLORIDE\ROSIGLITAZONE MALEATE
     Dosage: 2MG/500MG
     Dates: start: 2007
  17. LEVAQUIN [Concomitant]
     Active Substance: LEVOFLOXACIN
     Dosage: 250MG/500MG
     Dates: start: 2007
  18. LOTREL [Concomitant]
     Active Substance: AMLODIPINE BESYLATE\BENAZEPRIL HYDROCHLORIDE
     Dosage: 10MG/20MG
     Dates: start: 2007
  19. VASERETIC [Concomitant]
     Active Substance: ENALAPRIL MALEATE\HYDROCHLOROTHIAZIDE
     Dosage: 10/25MG
     Dates: start: 2007
  20. BENICAR HCT [Suspect]
     Active Substance: HYDROCHLOROTHIAZIDE\OLMESARTAN MEDOXOMIL
     Indication: HYPERTENSION
     Dosage: 10/20 MG
     Dates: start: 2008, end: 20100629
  21. GLUCOSE [Concomitant]
     Active Substance: DEXTROSE
  22. VALSARTAN. [Concomitant]
     Active Substance: VALSARTAN
     Dosage: UNK
     Dates: start: 2007
  23. OMEPRAZOLE. [Concomitant]
     Active Substance: OMEPRAZOLE
  24. LOPERAMIDE [Concomitant]
     Active Substance: LOPERAMIDE
  25. MINOXIDIL. [Concomitant]
     Active Substance: MINOXIDIL
     Dosage: UNK
     Dates: start: 2008, end: 2010
  26. SINGULAIR [Concomitant]
     Active Substance: MONTELUKAST SODIUM
     Dosage: 10 MG, UNK
     Dates: start: 2010
  27. FUROSEMIDE. [Concomitant]
     Active Substance: FUROSEMIDE
  28. CLONIDINE. [Concomitant]
     Active Substance: CLONIDINE
     Dosage: 0.3 MG, ONCE EVERY 8HR
     Dates: start: 2007
  29. ARTHROTEC [Concomitant]
     Active Substance: DICLOFENAC SODIUM\MISOPROSTOL
     Dosage: 50 MG, UNK
     Dates: start: 2009
  30. ALLEGRA-D [Concomitant]
     Active Substance: FEXOFENADINE\PSEUDOEPHEDRINE
     Dosage: UNK
     Dates: start: 2010
  31. TEKTURNA [Concomitant]
     Active Substance: ALISKIREN HEMIFUMARATE
     Dosage: 150MG/300M
     Dates: start: 2007, end: 2010

REACTIONS (5)
  - Dehydration [Fatal]
  - Dizziness [Unknown]
  - Weight decreased [None]
  - Death [Fatal]
  - Malabsorption [Unknown]

NARRATIVE: CASE EVENT DATE: 2008
